FAERS Safety Report 8336314-2 (Version None)
Quarter: 2012Q2

REPORT INFORMATION
  Report Type: 
  Country: None (occurrence: None)
  Receive Date: 20120504
  Receipt Date: 20120425
  Transmission Date: 20120825
  Serious: Yes (Hospitalization, Other)
  Sender: FDA-Public Use
  Company Number: PHHY2012BR036718

PATIENT
  Sex: Female

DRUGS (2)
  1. FORMOTEROL FUMARATE [Suspect]
     Indication: INCREASED UPPER AIRWAY SECRETION
     Dosage: 01 DF, BID
  2. FORMOTEROL FUMARATE [Suspect]
     Dosage: 01 DF, BID

REACTIONS (9)
  - PAIN [None]
  - VITAMIN D DEFICIENCY [None]
  - HYPERSENSITIVITY [None]
  - SKIN SWELLING [None]
  - SKIN BURNING SENSATION [None]
  - ERYTHEMA [None]
  - APPENDICITIS [None]
  - MEMORY IMPAIRMENT [None]
  - INCREASED BRONCHIAL SECRETION [None]
